FAERS Safety Report 5338897-3 (Version None)
Quarter: 2007Q2

REPORT INFORMATION
  Report Type: 
  Country: None (occurrence: None)
  Receive Date: 20070530
  Receipt Date: 20070530
  Transmission Date: 20071010
  Serious: Yes (Life-Threatening, Hospitalization)
  Sender: FDA-Public Use
  Company Number: US-BRISTOL-MYERS SQUIBB COMPANY-13766837

PATIENT
  Age: 36 Year
  Sex: Male
  Weight: 148 kg

DRUGS (5)
  1. DEFINITY [Suspect]
     Indication: ECHOCARDIOGRAM
     Route: 042
     Dates: start: 20070430, end: 20070430
  2. COREG [Concomitant]
  3. ENALAPRIL MALEATE [Concomitant]
  4. SPIRONOLACTONE [Concomitant]
  5. FUROSEMIDE [Concomitant]

REACTIONS (3)
  - BRADYCARDIA [None]
  - COMA [None]
  - HYPERHIDROSIS [None]
